FAERS Safety Report 9072998 (Version 1)
Quarter: 2013Q1

REPORT INFORMATION
  Report Type: Spontaneous
  Country: US (occurrence: US)
  Receive Date: 20130128
  Receipt Date: 20130128
  Transmission Date: 20140127
  Serious: No
  Sender: FDA-Public Use
  Company Number: US-ABBOTT-12P-163-0917705-00

PATIENT
  Age: 35 Year
  Sex: Male

DRUGS (2)
  1. HUMIRA 40 MG/ 0.8 ML PRE-FILLED SYRINGE [Suspect]
     Indication: ANKYLOSING SPONDYLITIS
     Dosage: ON HOLD FOR EVENT
     Dates: start: 2011
  2. VALTREX [Concomitant]
     Indication: HERPES ZOSTER
     Dates: start: 201202

REACTIONS (1)
  - Herpes zoster [Unknown]
